FAERS Safety Report 13305778 (Version 1)
Quarter: 2017Q1

REPORT INFORMATION
  Report Type: Spontaneous
  Country: AU (occurrence: AU)
  Receive Date: 20170308
  Receipt Date: 20170308
  Transmission Date: 20170428
  Serious: Yes (Life-Threatening, Other)
  Sender: FDA-Public Use
  Company Number: AU-009507513-1703AUS002806

PATIENT
  Sex: Female

DRUGS (3)
  1. SINGULAIR [Suspect]
     Active Substance: MONTELUKAST SODIUM
     Dosage: 5 MG, QD
     Route: 048
     Dates: start: 20101125, end: 20160907
  2. ASMOL [Concomitant]
     Active Substance: ALBUTEROL SULFATE
     Dosage: UNK UNK, PRN
  3. REDIPRED [Concomitant]
     Dosage: UNK, PRN
     Route: 048

REACTIONS (7)
  - Aggression [Not Recovered/Not Resolved]
  - Decreased appetite [Not Recovered/Not Resolved]
  - Hallucination [Not Recovered/Not Resolved]
  - Encopresis [Not Recovered/Not Resolved]
  - Suicide attempt [Not Recovered/Not Resolved]
  - Mood swings [Not Recovered/Not Resolved]
  - Suicidal ideation [Not Recovered/Not Resolved]

NARRATIVE: CASE EVENT DATE: 2010
